FAERS Safety Report 21835177 (Version 4)
Quarter: 2024Q4

REPORT INFORMATION
  Report Type: Spontaneous
  Country: US (occurrence: US)
  Receive Date: 20230109
  Receipt Date: 20241007
  Transmission Date: 20250115
  Serious: Yes (Death, Other)
  Sender: SANOFI AVENTIS
  Company Number: US-SA-SAC20230105001216

PATIENT
  Age: 91 Year
  Sex: Male

DRUGS (32)
  1. DUPIXENT [Suspect]
     Active Substance: DUPILUMAB
     Indication: Pemphigoid
     Dosage: 300 MG, QOW
     Route: 058
     Dates: start: 20220128, end: 20240930
  2. DUPIXENT [Suspect]
     Active Substance: DUPILUMAB
     Indication: Acne
  3. DUPIXENT [Suspect]
     Active Substance: DUPILUMAB
     Indication: Rash
  4. DUPIXENT [Suspect]
     Active Substance: DUPILUMAB
     Indication: Dermatitis atopic
  5. VITAMIN B12 [Concomitant]
     Active Substance: CYANOCOBALAMIN
     Dosage: UNK
  6. MUPIROCIN [Concomitant]
     Active Substance: MUPIROCIN
     Dosage: UNK
  7. METOPROLOL TARTRATE [Concomitant]
     Active Substance: METOPROLOL TARTRATE
     Dosage: UNK
  8. LORATADINE [Concomitant]
     Active Substance: LORATADINE
     Dosage: UNK
  9. TRIAMCINOLONE [Concomitant]
     Active Substance: TRIAMCINOLONE
     Dosage: UNK
  10. TUMS [Concomitant]
     Active Substance: CALCIUM CARBONATE
     Dosage: UNK
  11. MIRALAX [Concomitant]
     Active Substance: POLYETHYLENE GLYCOL 3350
     Dosage: UNK
  12. BUMEX [Concomitant]
     Active Substance: BUMETANIDE
     Dosage: UNK
  13. CALCIUM CITRATE [Concomitant]
     Active Substance: CALCIUM CITRATE
     Dosage: UNK
  14. VITAMINS [Concomitant]
     Active Substance: VITAMINS
     Dosage: UNK
  15. ARICEPT [Concomitant]
     Active Substance: DONEPEZIL HYDROCHLORIDE
     Dosage: UNK
  16. LEVOTHYROXINE [Concomitant]
     Active Substance: LEVOTHYROXINE
     Dosage: UNK
  17. THERAWORX RELIEF [Concomitant]
     Dosage: UNK
  18. REFRESH CLASSIC [Concomitant]
     Active Substance: POLYVINYL ALCOHOL\POVIDONE
     Dosage: UNK
  19. GABAPENTIN [Concomitant]
     Active Substance: GABAPENTIN
     Dosage: UNK
  20. AQUAPHOR [Concomitant]
     Active Substance: PETROLATUM
     Dosage: UNK
  21. AMOXICILLIN [Concomitant]
     Active Substance: AMOXICILLIN
     Dosage: UNK
  22. ELIQUIS [Concomitant]
     Active Substance: APIXABAN
  23. MINASTRIN 24 FE [Concomitant]
     Active Substance: ETHINYL ESTRADIOL\NORETHINDRONE ACETATE
     Dosage: UNK
  24. OMEPRAZOLE [Concomitant]
     Active Substance: OMEPRAZOLE
     Dosage: UNK
  25. CLOBETASOL [Concomitant]
     Active Substance: CLOBETASOL
     Dosage: UNK
  26. CLOPIDOGREL [Concomitant]
     Active Substance: CLOPIDOGREL BISULFATE
     Dosage: UNK
  27. TYLENOL [Concomitant]
     Active Substance: ACETAMINOPHEN
     Dosage: UNK
  28. TESTOSTERONE [Concomitant]
     Active Substance: TESTOSTERONE
     Dosage: UNK
  29. TIZANIDINE [Concomitant]
     Active Substance: TIZANIDINE
     Dosage: UNK
  30. TAMSULOSIN [Concomitant]
     Active Substance: TAMSULOSIN
     Dosage: UNK
  31. TORSEMIDE [Concomitant]
     Active Substance: TORSEMIDE
     Dosage: UNK
  32. FINASTERIDE [Concomitant]
     Active Substance: FINASTERIDE
     Dosage: UNK

REACTIONS (2)
  - Death [Fatal]
  - Product prescribing issue [Unknown]

NARRATIVE: CASE EVENT DATE: 20220128
